FAERS Safety Report 18214948 (Version 1)
Quarter: 2020Q3

REPORT INFORMATION
  Report Type: Spontaneous
  Country: FR (occurrence: FR)
  Receive Date: 20200831
  Receipt Date: 20200831
  Transmission Date: 20201103
  Serious: Yes (Other)
  Sender: FDA-Public Use
  Company Number: FR-MYLANLABS-2020M1074518

PATIENT
  Sex: Male
  Weight: 73 kg

DRUGS (1)
  1. FINASTERIDE MYLAN 5 MG, COMPRIM? PELLICUL? [Suspect]
     Active Substance: FINASTERIDE
     Indication: PROSTATIC DISORDER
     Dosage: 5 MILLIGRAM, QD
     Route: 042
     Dates: start: 20110221, end: 20200630

REACTIONS (5)
  - Depression [Recovering/Resolving]
  - Vertigo [Recovered/Resolved]
  - Anaemia [Not Recovered/Not Resolved]
  - Glaucoma [Recovered/Resolved]
  - Cardiac fibrillation [Recovering/Resolving]

NARRATIVE: CASE EVENT DATE: 20110824
